FAERS Safety Report 4889543-4 (Version None)
Quarter: 2006Q1

REPORT INFORMATION
  Report Type: 
  Country: None (occurrence: None)
  Receive Date: 20060120
  Receipt Date: 20060113
  Transmission Date: 20060701
  Serious: Yes (Hospitalization, Other)
  Sender: FDA-Public Use
  Company Number: FRWYE297813JAN06

PATIENT
  Age: 40 Year
  Sex: Male

DRUGS (4)
  1. TAZOCILLINE                  (PIPERCILLINE/TAZOBACTAM) [Suspect]
     Indication: CELLULITIS
     Dosage: 4 G 3X PER 1 DAY INTRAVENOUS
     Route: 042
     Dates: start: 20050729, end: 20050801
  2. SUSTIVA [Concomitant]
  3. EMTRICITABINE              (EMTRICITABINE) [Concomitant]
  4. TENOFOVIR DISOPROXIL FUMARATE [Concomitant]

REACTIONS (3)
  - CONDITION AGGRAVATED [None]
  - NEUTROPENIA [None]
  - TOXIC SKIN ERUPTION [None]
